FAERS Safety Report 13925803 (Version 2)
Quarter: 2017Q4

REPORT INFORMATION
  Report Type: Spontaneous
  Country: US (occurrence: US)
  Receive Date: 20170831
  Receipt Date: 20171219
  Transmission Date: 20180320
  Serious: Yes (Hospitalization, Other)
  Sender: FDA-Public Use
  Company Number: US-TEVA-800890USA

PATIENT
  Age: 82 Year

DRUGS (5)
  1. THALIDOMIDE [Concomitant]
     Active Substance: THALIDOMIDE
  2. LENALIDOMIDE [Concomitant]
     Active Substance: LENALIDOMIDE
  3. TREANDA [Suspect]
     Active Substance: BENDAMUSTINE HYDROCHLORIDE
     Dosage: DAILYX2
     Route: 042
     Dates: start: 20170720, end: 20170721
  4. RITUXAN [Suspect]
     Active Substance: RITUXIMAB
     Dosage: 1X
     Route: 042
     Dates: start: 20170722, end: 20170722
  5. NINLARO [Suspect]
     Active Substance: IXAZOMIB CITRATE
     Route: 065

REACTIONS (2)
  - Body temperature increased [Unknown]
  - Neutropenia [Not Recovered/Not Resolved]

NARRATIVE: CASE EVENT DATE: 20170803
